FAERS Safety Report 15750683 (Version 1)
Quarter: 2018Q4

REPORT INFORMATION
  Report Type: Spontaneous
  Country: US (occurrence: US)
  Receive Date: 20181221
  Receipt Date: 20181221
  Transmission Date: 20190205
  Serious: Yes (Disabling)
  Sender: FDA-Public Use
  Company Number: None

PATIENT
  Age: 49 Year
  Sex: Female
  Weight: 69.75 kg

DRUGS (1)
  1. VALACYCLOVIR 500MG - VALACYCLOVIR HCL 500MG - BLUE/CAP/VC 500 {NONE} [Suspect]
     Active Substance: VALACYCLOVIR HYDROCHLORIDE
     Indication: HERPES VIRUS INFECTION
     Route: 048
     Dates: start: 20181220, end: 20181221

REACTIONS (2)
  - Muscle tightness [None]
  - Back pain [None]

NARRATIVE: CASE EVENT DATE: 20181221
